FAERS Safety Report 24021244 (Version 3)
Quarter: 2024Q4

REPORT INFORMATION
  Report Type: Spontaneous
  Country: US (occurrence: US)
  Receive Date: 20240627
  Receipt Date: 20241231
  Transmission Date: 20250115
  Serious: No
  Sender: BRISTOL-MYERS SQUIBB COMPANY
  Company Number: US-BRISTOL-MYERS SQUIBB COMPANY-2024-103214

PATIENT
  Age: 47 Year
  Sex: Female

DRUGS (3)
  1. SPRYCEL [Suspect]
     Active Substance: DASATINIB
     Indication: Leukaemia
     Route: 048
     Dates: start: 202305
  2. SPRYCEL [Suspect]
     Active Substance: DASATINIB
     Route: 048
     Dates: start: 202305
  3. SPRYCEL [Suspect]
     Active Substance: DASATINIB
     Dosage: STRENGTH: 100MG
     Route: 048
     Dates: start: 202305

REACTIONS (2)
  - Heat exhaustion [Unknown]
  - Hair colour changes [Unknown]

NARRATIVE: CASE EVENT DATE: 20240501
